FAERS Safety Report 6907872-7 (Version None)
Quarter: 2010Q3

REPORT INFORMATION
  Report Type: 
  Country: None (occurrence: None)
  Receive Date: 20100805
  Receipt Date: 20100727
  Transmission Date: 20110219
  Serious: Yes (Other)
  Sender: FDA-Public Use
  Company Number: ES-ASTRAZENECA-2010SE35382

PATIENT
  Age: 73 Year
  Sex: Male

DRUGS (1)
  1. RILAST FORTE [Suspect]
     Indication: ASTHMA
     Dosage: 4 DF
     Route: 055
     Dates: start: 20100112, end: 20100325

REACTIONS (2)
  - MUSCLE SPASMS [None]
  - TETANY [None]
